FAERS Safety Report 6408800-3 (Version None)
Quarter: 2009Q4

REPORT INFORMATION
  Report Type: 
  Country: None (occurrence: None)
  Receive Date: 20091021
  Receipt Date: 20091014
  Transmission Date: 20100525
  Serious: Yes (Other)
  Sender: FDA-Public Use
  Company Number: B0593293A

PATIENT
  Sex: Female

DRUGS (3)
  1. FLUTIDE DISKUS [Suspect]
     Indication: ASTHMA
     Dosage: 100MCG TWICE PER DAY
     Route: 055
     Dates: start: 20090721, end: 20090915
  2. SERETIDE DISKUS [Concomitant]
     Indication: ASTHMA
     Dosage: 1PUFF TWICE PER DAY
     Route: 055
  3. PL [Concomitant]
     Indication: NASOPHARYNGITIS
     Dosage: 3G PER DAY
     Route: 048
     Dates: start: 20090818, end: 20090820

REACTIONS (3)
  - ASTHMA [None]
  - CHOKING SENSATION [None]
  - PRODUCT QUALITY ISSUE [None]
